FAERS Safety Report 15676625 (Version 7)
Quarter: 2020Q4

REPORT INFORMATION
  Report Type: Report from Study
  Country: GB (occurrence: GB)
  Receive Date: 20181130
  Receipt Date: 20201014
  Transmission Date: 20210113
  Serious: Yes (Death)
  Sender: FDA-Public Use
  Company Number: GB-PFIZER INC-2018492489

PATIENT

DRUGS (4)
  1. DOXORUBICIN [Suspect]
     Active Substance: DOXORUBICIN
     Indication: HODGKIN^S DISEASE
     Dosage: 25 MG/M2 CYCLIC (DAYS 1 AND 15, UP TO SIX 28-DAY CYCLES)
     Route: 042
  2. DACARBAZINE. [Suspect]
     Active Substance: DACARBAZINE
     Indication: HODGKIN^S DISEASE
     Dosage: 375 MG/M2 CYCLIC (DAYS 1 AND 15, UP TO SIX 28-DAY CYCLES)
     Route: 042
  3. BRENTUXIMAB VEDOTIN RECOMBINANT [Suspect]
     Active Substance: BRENTUXIMAB VEDOTIN
     Indication: HODGKIN^S DISEASE
     Dosage: 1.2 MG/KG CYCLIC (DAYS 1 AND 15, UP TO SIX 28-DAY CYCLES)
     Route: 042
  4. VINBLASTINE [Suspect]
     Active Substance: VINBLASTINE
     Indication: HODGKIN^S DISEASE
     Dosage: 6 MG/M2 CYCLIC (DAYS 1 AND 15, UP TO SIX 28-DAY CYCLES)
     Route: 042

REACTIONS (1)
  - Neutropenia [Fatal]
